FAERS Safety Report 23254333 (Version 1)
Quarter: 2023Q4

REPORT INFORMATION
  Report Type: Spontaneous
  Country: US (occurrence: US)
  Receive Date: 20231202
  Receipt Date: 20231202
  Transmission Date: 20240110
  Serious: No
  Sender: FDA-Public Use
  Company Number: US-Fresenius Medical Care Renal Therapies Group-FMC-2311-001292

PATIENT
  Age: 61 Year
  Sex: Male
  Weight: 98 kg

DRUGS (3)
  1. DELFLEX WITH DEXTROSE 1.5% LOW MAGNESIUM LOW CALCIUM [Suspect]
     Active Substance: CALCIUM CHLORIDE\DEXTROSE\MAGNESIUM CHLORIDE\SODIUM CHLORIDE\SODIUM LACTATE
     Dosage: EXCHANGES 4, FILL VOLUME 2200 ML, DWELL TIME 1.5 HOURS, LAST FILL 2000 ML (ICODEXTRIN), DAYTIME DWEL
     Route: 033
  2. DELFLEX WITH DEXTROSE 2.5% LOW MAGNESIUM LOW CALCIUM [Suspect]
     Active Substance: CALCIUM CHLORIDE\DEXTROSE\MAGNESIUM CHLORIDE\SODIUM CHLORIDE\SODIUM LACTATE
     Dosage: EXCHANGES 4, FILL VOLUME 2200 ML, DWELL TIME 1.5 HOURS, LAST FILL 2000 ML (ICODEXTRIN), DAYTIME DWEL
     Route: 033
  3. DELFLEX WITH DEXTROSE 4.25% LOW MAGNESIUM LOW CALCIUM [Suspect]
     Active Substance: CALCIUM CHLORIDE\DEXTROSE\MAGNESIUM CHLORIDE\SODIUM CHLORIDE\SODIUM LACTATE
     Dosage: EXCHANGES 4, FILL VOLUME 2200 ML, DWELL TIME 1.5 HOURS, LAST FILL 2000 ML (ICODEXTRIN), DAYTIME DWEL
     Route: 033

REACTIONS (1)
  - Epigastric discomfort [Unknown]
